FAERS Safety Report 7157319-3 (Version None)
Quarter: 2010Q4

REPORT INFORMATION
  Report Type: 
  Country: None (occurrence: None)
  Receive Date: 20101214
  Receipt Date: 20101208
  Transmission Date: 20110411
  Serious: Yes (Other)
  Sender: FDA-Public Use
  Company Number: US-PFIZER INC-2010167659

PATIENT
  Sex: Male
  Weight: 110 kg

DRUGS (4)
  1. SUTENT [Suspect]
     Indication: RENAL CANCER
     Dosage: 50 MG, DAILY
     Route: 048
     Dates: start: 20101101, end: 20101118
  2. WARFARIN [Concomitant]
     Dosage: UNK
  3. TOPROL-XL [Concomitant]
     Dosage: UNK
  4. SIMVASTATIN [Concomitant]
     Dosage: UNK

REACTIONS (4)
  - ASTHENIA [None]
  - FATIGUE [None]
  - HYPERTHYROIDISM [None]
  - MALAISE [None]
